FAERS Safety Report 5918812-1 (Version None)
Quarter: 2008Q3

REPORT INFORMATION
  Report Type: 
  Country: None (occurrence: None)
  Receive Date: 20080909
  Receipt Date: 20070828
  Transmission Date: 20090109
  Serious: Yes (Other)
  Sender: FDA-Public Use
  Company Number: 163-20785-07080781

PATIENT
  Age: 82 Year
  Sex: Male

DRUGS (3)
  1. THALOMID [Suspect]
     Indication: MULTIPLE MYELOMA
     Dosage: 100 MG, DAILY, ORAL ; 150 MG, DAILY, ORAL ; 50 MG, DAILY, ORAL
     Route: 048
     Dates: start: 20040412, end: 20040621
  2. THALOMID [Suspect]
     Indication: MULTIPLE MYELOMA
     Dosage: 100 MG, DAILY, ORAL ; 150 MG, DAILY, ORAL ; 50 MG, DAILY, ORAL
     Route: 048
     Dates: start: 20040714, end: 20070126
  3. THALOMID [Suspect]
     Indication: MULTIPLE MYELOMA
     Dosage: 100 MG, DAILY, ORAL ; 150 MG, DAILY, ORAL ; 50 MG, DAILY, ORAL
     Route: 048
     Dates: start: 20070424, end: 20070723

REACTIONS (3)
  - BACK DISORDER [None]
  - FALL [None]
  - FRACTURE [None]
